FAERS Safety Report 10411099 (Version 1)
Quarter: 2014Q3

REPORT INFORMATION
  Report Type: Spontaneous
  Country: DK (occurrence: DK)
  Receive Date: 20140826
  Receipt Date: 20140826
  Transmission Date: 20150326
  Serious: Yes (Death)
  Sender: FDA-Public Use
  Company Number: DK-WATSON-2014-18360

PATIENT
  Age: 51 Year
  Sex: Male

DRUGS (1)
  1. CIPROFLOXACIN HYDROCHLORIDE (UNKNOWN) [Suspect]
     Active Substance: CIPROFLOXACIN HYDROCHLORIDE
     Indication: INFECTION
     Dosage: 500 MG, UNKNOWN
     Route: 065
     Dates: start: 201403

REACTIONS (1)
  - Respiratory disorder [Fatal]

NARRATIVE: CASE EVENT DATE: 20140314
